FAERS Safety Report 4458956-7 (Version None)
Quarter: 2004Q3

REPORT INFORMATION
  Report Type: 
  Country: None (occurrence: None)
  Receive Date: 20040923
  Receipt Date: 20040923
  Transmission Date: 20050211
  Serious: Yes (Disabling, Other)
  Sender: FDA-Public Use
  Company Number: None

PATIENT
  Age: 64 Year
  Sex: Female
  Weight: 83.0083 kg

DRUGS (1)
  1. LIPITOR - PFIZER PARKE DAVIS [Suspect]
     Indication: BLOOD CHOLESTEROL INCREASED
     Dosage: 25 MG ? 1 DAILY
     Dates: start: 20020101

REACTIONS (14)
  - ARTHRITIS [None]
  - ASTHENIA [None]
  - BLOOD CHOLESTEROL INCREASED [None]
  - DECREASED ACTIVITY [None]
  - DIFFICULTY IN WALKING [None]
  - HYPERTENSION [None]
  - INFLAMMATION [None]
  - MOVEMENT DISORDER [None]
  - MUSCLE MASS [None]
  - MYALGIA [None]
  - MYOSITIS [None]
  - NERVOUS SYSTEM DISORDER [None]
  - PAIN IN EXTREMITY [None]
  - WEIGHT INCREASED [None]
